FAERS Safety Report 6801320-3 (Version None)
Quarter: 2010Q2

REPORT INFORMATION
  Report Type: 
  Country: None (occurrence: None)
  Receive Date: 20100629
  Receipt Date: 20100615
  Transmission Date: 20101027
  Serious: Yes (Other)
  Sender: FDA-Public Use
  Company Number: ZA-ROCHE-700833

PATIENT
  Sex: Female

DRUGS (3)
  1. PEGASYS [Suspect]
     Indication: HEPATITIS
     Route: 065
     Dates: start: 20090914
  2. COPEGUS [Suspect]
     Indication: HEPATITIS
     Route: 065
     Dates: start: 20090914
  3. RIFAMPICIN [Suspect]
     Indication: TUBERCULOSIS
     Route: 065

REACTIONS (3)
  - ANAEMIA HAEMOLYTIC AUTOIMMUNE [None]
  - PSYCHOTIC DISORDER [None]
  - PULMONARY TUBERCULOSIS [None]
